FAERS Safety Report 20049391 (Version 1)
Quarter: 2021Q4

REPORT INFORMATION
  Report Type: Spontaneous
  Country: US (occurrence: US)
  Receive Date: 20211109
  Receipt Date: 20211109
  Transmission Date: 20220303
  Serious: No
  Sender: FDA-Public Use
  Company Number: US-PFIZER INC-202101057088

PATIENT
  Age: 53 Year
  Sex: Female

DRUGS (1)
  1. IBRANCE [Suspect]
     Active Substance: PALBOCICLIB
     Indication: Breast cancer female
     Dosage: 125 MG, CYCLIC( DAILY FOR 21 DAYS)
     Route: 048
     Dates: start: 20210204

REACTIONS (3)
  - Alopecia [Unknown]
  - Gingival pain [Unknown]
  - Gingival bleeding [Unknown]
